FAERS Safety Report 10312050 (Version 3)
Quarter: 2014Q3

REPORT INFORMATION
  Report Type: Report from Study
  Country: MX (occurrence: MX)
  Receive Date: 20140717
  Receipt Date: 20140804
  Transmission Date: 20150326
  Serious: Yes (Other)
  Sender: FDA-Public Use
  Company Number: PHHY2013MX045638

PATIENT
  Age: 72 Year
  Sex: Female

DRUGS (3)
  1. EXFORGE HCT [Suspect]
     Active Substance: AMLODIPINE BESYLATE\HYDROCHLOROTHIAZIDE\VALSARTAN
     Indication: HYPERTENSION
     Dosage: 1 DF, (320/UKN MG) DAILY
     Route: 048
     Dates: start: 201111
  2. CONCOR [Concomitant]
     Active Substance: BISOPROLOL FUMARATE
     Indication: HYPERTENSION
     Dosage: 1 DF, DAILY
     Dates: start: 201205
  3. DICLOFENAC [Concomitant]
     Active Substance: DICLOFENAC
     Indication: ANTIINFLAMMATORY THERAPY
     Dosage: 1 DF, DAILY
     Dates: start: 201105

REACTIONS (9)
  - Cough [Not Recovered/Not Resolved]
  - Pain [Recovered/Resolved]
  - Anxiety [Recovered/Resolved]
  - Drug ineffective [Not Recovered/Not Resolved]
  - Hypokinesia [Not Recovered/Not Resolved]
  - Sciatic nerve injury [Recovered/Resolved]
  - Hernia [Recovering/Resolving]
  - Laryngitis [Not Recovered/Not Resolved]
  - Blood pressure increased [Not Recovered/Not Resolved]

NARRATIVE: CASE EVENT DATE: 201211
